FAERS Safety Report 5420690-4 (Version None)
Quarter: 2007Q3

REPORT INFORMATION
  Report Type: 
  Country: None (occurrence: None)
  Receive Date: 20070821
  Receipt Date: 20070810
  Transmission Date: 20080115
  Serious: Yes (Other)
  Sender: FDA-Public Use
  Company Number: US-JNJFOC-20070802872

PATIENT
  Age: 50 Year
  Sex: Male
  Weight: 54.43 kg

DRUGS (3)
  1. REMICADE [Suspect]
     Route: 042
  2. REMICADE [Suspect]
     Indication: RHEUMATOID ARTHRITIS
     Route: 042
  3. SOLU-MEDROL [Concomitant]
     Indication: PREMEDICATION

REACTIONS (2)
  - BURNING SENSATION [None]
  - ERYTHEMA [None]
